FAERS Safety Report 9425605 (Version 1)
Quarter: 2013Q3

REPORT INFORMATION
  Report Type: Spontaneous
  Country: US (occurrence: US)
  Receive Date: 20130729
  Receipt Date: 20130729
  Transmission Date: 20140515
  Serious: No
  Sender: FDA-Public Use
  Company Number: US-MYLANLABS-2013S1008460

PATIENT
  Age: 45 Year
  Sex: Female
  Weight: 47.17 kg

DRUGS (3)
  1. LEVOTHYROXINE SODIUM TABLETS, USP [Suspect]
     Indication: HYPOTHYROIDISM
     Dosage: 88UG TABLET Q3D, ALTERNATING WITH 2 DAYS OF 100UG TABLET.
     Route: 048
     Dates: start: 20130407
  2. LEVOTHYROXINE SODIUM TABLETS, USP [Concomitant]
     Dosage: 07-APR-2013,  DOSE CHANGED TO 100UG QD FOR 2 DAYS OUT OF Q3DAYS. ALTERNATES WITH 88 UG TABLET.
     Route: 048
     Dates: start: 20130404, end: 20130406
  3. LEVOTHYROXINE SODIUM TABLETS, USP [Suspect]
     Indication: HYPOTHYROIDISM
     Route: 048
     Dates: start: 20130404, end: 20130406

REACTIONS (10)
  - Drug effect decreased [Recovered/Resolved]
  - Hypothyroidism [Not Recovered/Not Resolved]
  - Fatigue [Recovered/Resolved]
  - Feeling cold [Recovered/Resolved]
  - Dark circles under eyes [Recovered/Resolved]
  - Psoriasis [Recovered/Resolved]
  - Dry skin [Recovered/Resolved]
  - Skin fissures [Recovered/Resolved]
  - Eye swelling [Recovered/Resolved]
  - Dry mouth [Recovered/Resolved]
